FAERS Safety Report 13949884 (Version 1)
Quarter: 2017Q3

REPORT INFORMATION
  Report Type: Spontaneous
  Country: AT (occurrence: AT)
  Receive Date: 20170908
  Receipt Date: 20170908
  Transmission Date: 20171128
  Serious: Yes (Other)
  Sender: FDA-Public Use
  Company Number: AT-BAYER-2017-167083

PATIENT
  Age: 23 Year
  Sex: Male
  Weight: 95 kg

DRUGS (1)
  1. AVELOX [Suspect]
     Active Substance: MOXIFLOXACIN HYDROCHLORIDE
     Indication: SINUSITIS
     Dosage: 400 MG, QD
     Route: 048
     Dates: start: 20170516, end: 20170516

REACTIONS (12)
  - Cognitive disorder [Recovering/Resolving]
  - Weight decreased [Not Recovered/Not Resolved]
  - Insomnia [Recovered/Resolved]
  - Illusion [Recovering/Resolving]
  - Food intolerance [Not Recovered/Not Resolved]
  - Tenosynovitis [Not Recovered/Not Resolved]
  - Dizziness [Recovering/Resolving]
  - Arthralgia [Recovering/Resolving]
  - Carpal tunnel syndrome [Not Recovered/Not Resolved]
  - Tendon pain [Not Recovered/Not Resolved]
  - Tinnitus [Recovering/Resolving]
  - Joint swelling [Not Recovered/Not Resolved]

NARRATIVE: CASE EVENT DATE: 20170516
